FAERS Safety Report 21815198 (Version 1)
Quarter: 2023Q1

REPORT INFORMATION
  Report Type: Report from Study
  Country: US (occurrence: US)
  Receive Date: 20230104
  Receipt Date: 20230104
  Transmission Date: 20230417
  Serious: No
  Sender: FDA-Public Use
  Company Number: US-ABBVIE-4222715

PATIENT
  Sex: Male

DRUGS (2)
  1. SKYRIZI [Suspect]
     Active Substance: RISANKIZUMAB-RZAA
     Indication: Psoriasis
     Dosage: FREQUENCY TEXT: WEEK 0
     Route: 058
     Dates: start: 20221012
  2. SKYRIZI [Suspect]
     Active Substance: RISANKIZUMAB-RZAA
     Dosage: FREQUENCY TEXT: WEEK 4?DURATION TEXT: EVERY 12 WEEKS THEREAFTER
     Route: 058
     Dates: start: 20221109

REACTIONS (2)
  - Drug ineffective [Unknown]
  - Psoriasis [Unknown]
